FAERS Safety Report 22223968 (Version 1)
Quarter: 2023Q2

REPORT INFORMATION
  Report Type: Spontaneous
  Country: US (occurrence: None)
  Receive Date: 20230417
  Receipt Date: 20230417
  Transmission Date: 20230721
  Serious: Yes (Life-Threatening)
  Sender: FDA-Public Use
  Company Number: None

PATIENT
  Age: 51 Year
  Sex: Female
  Weight: 60.75 kg

DRUGS (3)
  1. NIACIN [Suspect]
     Active Substance: NIACIN
     Indication: Rheumatoid arthritis
     Route: 048
     Dates: start: 20230417, end: 20230417
  2. RITUXAN [Suspect]
     Active Substance: RITUXIMAB
  3. SERTRALINE [Concomitant]
     Active Substance: SERTRALINE HYDROCHLORIDE

REACTIONS (5)
  - Hypersensitivity [None]
  - Electric shock sensation [None]
  - Respiratory rate increased [None]
  - Circulatory collapse [None]
  - Presyncope [None]

NARRATIVE: CASE EVENT DATE: 20230417
